FAERS Safety Report 8076800-6 (Version None)
Quarter: 2011Q4

REPORT INFORMATION
  Report Type: 
  Country: None (occurrence: None)
  Receive Date: 20111221
  Receipt Date: 20110121
  Transmission Date: 20120403
  Serious: Yes (Other)
  Sender: FDA-Public Use
  Company Number: PHHY2009US66531

PATIENT
  Age: 14 Year
  Sex: Male
  Weight: 39.5 kg

DRUGS (9)
  1. ASPIRIN [Concomitant]
  2. EXJADE [Suspect]
     Indication: SICKLE CELL ANAEMIA
     Dosage: 625 MG, QD, ORAL, ,ORAL , 750 MG, ,ORAL
     Route: 048
     Dates: start: 20100201
  3. EXJADE [Suspect]
     Indication: IRON OVERLOAD
     Dosage: 625 MG, QD, ORAL, ,ORAL , 750 MG, ,ORAL
     Route: 048
     Dates: start: 20100201
  4. EXJADE [Suspect]
     Indication: SICKLE CELL ANAEMIA
     Dosage: 625 MG, QD, ORAL, ,ORAL , 750 MG, ,ORAL
     Route: 048
     Dates: start: 20090801, end: 20090801
  5. EXJADE [Suspect]
     Indication: IRON OVERLOAD
     Dosage: 625 MG, QD, ORAL, ,ORAL , 750 MG, ,ORAL
     Route: 048
     Dates: start: 20090801, end: 20090801
  6. NORVASC [Concomitant]
  7. AMOXIL [Concomitant]
  8. HYDROXYUREA [Concomitant]
  9. TOPAMAX [Concomitant]

REACTIONS (1)
  - ABDOMINAL PAIN [None]
